FAERS Safety Report 12405980 (Version 2)
Quarter: 2016Q2

REPORT INFORMATION
  Report Type: Other
  Country: IT (occurrence: IT)
  Receive Date: 20160526
  Receipt Date: 20160603
  Transmission Date: 20160815
  Serious: Yes (Other)
  Sender: FDA-Public Use
  Company Number: IT-APOTEX-2016AP008628

PATIENT
  Age: 66 Year
  Sex: Female

DRUGS (1)
  1. CLARITROMICINA DOC GENERICI [Suspect]
     Active Substance: CLARITHROMYCIN
     Indication: COUGH
     Dosage: TOTAL
     Route: 048
     Dates: start: 20160317, end: 20160317

REACTIONS (3)
  - Abdominal pain upper [Recovering/Resolving]
  - Lip oedema [Recovering/Resolving]
  - Urticaria [Recovering/Resolving]

NARRATIVE: CASE EVENT DATE: 20160318
